FAERS Safety Report 6423393-2 (Version None)
Quarter: 2009Q4

REPORT INFORMATION
  Report Type: 
  Country: None (occurrence: None)
  Receive Date: 20091102
  Receipt Date: 20091027
  Transmission Date: 20100525
  Serious: Yes (Hospitalization)
  Sender: FDA-Public Use
  Company Number: A0811184A

PATIENT
  Age: 56 Year
  Sex: Female

DRUGS (1)
  1. AVANDIA [Suspect]
     Indication: TYPE 2 DIABETES MELLITUS
     Dosage: 8MG PER DAY
     Route: 048
     Dates: start: 20000501, end: 20010901

REACTIONS (20)
  - ABSCESS LIMB [None]
  - ACUTE RESPIRATORY FAILURE [None]
  - ANKLE FRACTURE [None]
  - ARTERIOSCLEROSIS CORONARY ARTERY [None]
  - ASTHENIA [None]
  - CARDIAC FAILURE CONGESTIVE [None]
  - CELLULITIS [None]
  - DEHYDRATION [None]
  - DELIRIUM [None]
  - DIABETES MELLITUS [None]
  - EMOTIONAL DISTRESS [None]
  - EXERCISE TOLERANCE DECREASED [None]
  - FATIGUE [None]
  - HYPERLIPIDAEMIA [None]
  - LIFE EXPECTANCY SHORTENED [None]
  - MYOCARDIAL INFARCTION [None]
  - PAIN [None]
  - QUALITY OF LIFE DECREASED [None]
  - URINARY TRACT INFECTION [None]
  - WEIGHT INCREASED [None]
